FAERS Safety Report 13941379 (Version 2)
Quarter: 2017Q3

REPORT INFORMATION
  Report Type: Report from Study
  Country: AU (occurrence: AU)
  Receive Date: 20170906
  Receipt Date: 20170908
  Transmission Date: 20171127
  Serious: Yes (Hospitalization)
  Sender: FDA-Public Use
  Company Number: PHHY2017AU129927

PATIENT
  Age: 62 Year
  Sex: Male

DRUGS (1)
  1. MYFORTIC [Suspect]
     Active Substance: MYCOPHENOLATE SODIUM
     Indication: LUPUS NEPHRITIS
     Dosage: 720 MG, BID
     Route: 048
     Dates: start: 201406

REACTIONS (4)
  - Decreased appetite [Unknown]
  - Systemic lupus erythematosus [Recovered/Resolved]
  - Renal impairment [Recovered/Resolved]
  - Delirium [Recovered/Resolved]

NARRATIVE: CASE EVENT DATE: 20150404
